FAERS Safety Report 8228422-1 (Version None)
Quarter: 2012Q1

REPORT INFORMATION
  Report Type: 
  Country: None (occurrence: None)
  Receive Date: 20120322
  Receipt Date: 20120307
  Transmission Date: 20120608
  Serious: Yes (Hospitalization)
  Sender: FDA-Public Use
  Company Number: JP-VALEANT-2012VX001143

PATIENT
  Sex: Female

DRUGS (5)
  1. TS-1 [Suspect]
     Route: 065
  2. METHOTREXATE [Suspect]
     Route: 065
  3. CISPLATIN [Suspect]
     Route: 065
  4. DOCETAXEL [Suspect]
     Route: 065
  5. FLUOROURACIL [Suspect]
     Route: 042

REACTIONS (3)
  - PROCTALGIA [None]
  - ABDOMINAL PAIN [None]
  - DIARRHOEA [None]
